FAERS Safety Report 16088263 (Version 1)
Quarter: 2019Q2

REPORT INFORMATION
  Report Type: Spontaneous
  Country: US (occurrence: US)
  Receive Date: 20190318
  Receipt Date: 20190318
  Transmission Date: 20190711
  Serious: Yes (Other)
  Sender: FDA-Public Use
  Company Number: None

PATIENT
  Age: 69 Year
  Sex: Female
  Weight: 64.8 kg

DRUGS (1)
  1. LOSARTAN 50 MG TAB, 31722-0701-90 [Suspect]
     Active Substance: LOSARTAN
     Indication: HYPERTENSION
     Route: 048
     Dates: start: 20150714, end: 20190312

REACTIONS (3)
  - Alopecia [None]
  - Pollakiuria [None]
  - Skin mass [None]

NARRATIVE: CASE EVENT DATE: 20171206
